FAERS Safety Report 5356875-5 (Version None)
Quarter: 2007Q2

REPORT INFORMATION
  Report Type: 
  Country: None (occurrence: None)
  Receive Date: 20070530
  Receipt Date: 20061214
  Transmission Date: 20071010
  Serious: Yes (Other)
  Sender: FDA-Public Use
  Company Number: US200608003129

PATIENT
  Age: 23 Year
  Sex: Male
  Weight: 83.9 kg

DRUGS (6)
  1. ZYPREXA [Suspect]
     Dosage: SEE IMAGE
     Dates: end: 20021001
  2. ZYPREXA [Suspect]
     Dosage: SEE IMAGE
     Dates: start: 20011001
  3. BUPROPION HCL [Concomitant]
  4. CITALOPRAM HYDROBROMIDE [Concomitant]
  5. PAROXETINE [Concomitant]
  6. SERTRALINE [Concomitant]

REACTIONS (6)
  - DIABETES MELLITUS [None]
  - DIABETIC COMA [None]
  - DIABETIC KETOACIDOSIS [None]
  - GLYCOSURIA [None]
  - HYPERGLYCAEMIA [None]
  - PANCREATITIS [None]
